APPROVED DRUG PRODUCT: DIPHENHYDRAMINE HYDROCHLORIDE
Active Ingredient: DIPHENHYDRAMINE HYDROCHLORIDE
Strength: 12.5MG/5ML
Dosage Form/Route: SYRUP;ORAL
Application: A073611 | Product #001
Applicant: CUMBERLAND SWAN INC
Approved: Aug 20, 1992 | RLD: No | RS: No | Type: DISCN